FAERS Safety Report 6642635-1 (Version None)
Quarter: 2010Q1

REPORT INFORMATION
  Report Type: 
  Country: None (occurrence: None)
  Receive Date: 20100319
  Receipt Date: 20100316
  Transmission Date: 20100710
  Serious: Yes (Hospitalization, Disabling, Other)
  Sender: FDA-Public Use
  Company Number: US-MERCK-0909USA01533

PATIENT
  Age: 70 Year
  Sex: Female
  Weight: 73 kg

DRUGS (5)
  1. FOSAMAX [Suspect]
     Indication: BONE DENSITY ABNORMAL
     Route: 048
     Dates: start: 20010101, end: 20080901
  2. FOSAMAX [Suspect]
     Route: 048
     Dates: start: 20031101
  3. FOSAMAX [Suspect]
     Indication: OSTEOPOROSIS
     Route: 048
     Dates: start: 20010101, end: 20080901
  4. FOSAMAX [Suspect]
     Route: 048
     Dates: start: 20031101
  5. FOSAMAX PLUS D [Suspect]
     Indication: OSTEOPOROSIS
     Route: 048
     Dates: start: 20080225

REACTIONS (22)
  - ARTHRALGIA [None]
  - BONE DISORDER [None]
  - CATARACT [None]
  - DIABETES MELLITUS INADEQUATE CONTROL [None]
  - DIABETIC RETINOPATHY [None]
  - EYE DISORDER [None]
  - FISTULA [None]
  - GLAUCOMA [None]
  - IMPAIRED HEALING [None]
  - INFLAMMATION [None]
  - MENISCUS LESION [None]
  - MICROALBUMINURIA [None]
  - MYOPIA [None]
  - OSTEOARTHRITIS [None]
  - OSTEONECROSIS [None]
  - PAIN [None]
  - RENAL FAILURE CHRONIC [None]
  - SCIATICA [None]
  - SUICIDAL IDEATION [None]
  - SYNOVITIS [None]
  - TEMPOROMANDIBULAR JOINT SYNDROME [None]
  - WOUND DRAINAGE [None]
